FAERS Safety Report 18779920 (Version 1)
Quarter: 2021Q1

REPORT INFORMATION
  Report Type: Spontaneous
  Country: US (occurrence: US)
  Receive Date: 20210125
  Receipt Date: 20210125
  Transmission Date: 20210419
  Serious: No
  Sender: FDA-Public Use
  Company Number: US-SA-2021SA017583

PATIENT
  Sex: Female

DRUGS (2)
  1. GLATIRAMER ACETATE. [Suspect]
     Active Substance: GLATIRAMER ACETATE
  2. TERIFLUNOMIDE. [Suspect]
     Active Substance: TERIFLUNOMIDE
     Indication: MULTIPLE SCLEROSIS
     Dosage: 14 MG, QD
     Route: 048

REACTIONS (13)
  - Burning sensation [Unknown]
  - Fatigue [Unknown]
  - Hypoaesthesia [Unknown]
  - Feeling hot [Unknown]
  - Oral discomfort [Unknown]
  - Muscular weakness [Unknown]
  - Muscle twitching [Unknown]
  - Peripheral swelling [Unknown]
  - Contusion [Unknown]
  - Abdominal pain upper [Unknown]
  - Diarrhoea [Unknown]
  - Amenorrhoea [Unknown]
  - Infertility [Unknown]
